FAERS Safety Report 8251741-X (Version None)
Quarter: 2012Q2

REPORT INFORMATION
  Report Type: 
  Country: None (occurrence: None)
  Receive Date: 20120402
  Receipt Date: 20120327
  Transmission Date: 20120825
  Serious: Yes (Death, Life-Threatening, Other)
  Sender: FDA-Public Use
  Company Number: KR-ROXANE LABORATORIES, INC.-2012-RO-00905RO

PATIENT
  Age: 43 Year
  Sex: Female

DRUGS (14)
  1. DEFLAZACORT [Suspect]
     Indication: LUNG TRANSPLANT
  2. TACROLIMUS [Suspect]
     Indication: IMMUNOSUPPRESSANT DRUG THERAPY
  3. AMPHOTERICIN B [Suspect]
     Indication: BRONCHOPULMONARY ASPERGILLOSIS
  4. VORICONAZOLE [Suspect]
     Indication: BRONCHOPULMONARY ASPERGILLOSIS
  5. MYCOPHENOLATE MOFETIL [Suspect]
     Indication: IMMUNOSUPPRESSANT DRUG THERAPY
  6. ITRACONAZOLE [Suspect]
     Indication: ASPERGILLOSIS
     Dosage: 400 MG
  7. FLUCONAZOLE [Suspect]
     Indication: PROPHYLAXIS
     Dosage: 50 MG
  8. MYCOPHENOLATE MOFETIL [Suspect]
     Indication: LUNG TRANSPLANT
  9. COTRIM [Suspect]
     Indication: ANTIBIOTIC PROPHYLAXIS
  10. VALGANCICLOVIR [Suspect]
     Indication: ANTIBIOTIC PROPHYLAXIS
  11. VORICONAZOLE [Suspect]
     Indication: PNEUMONIA
     Dosage: 150 MG
  12. DEFLAZACORT [Suspect]
     Indication: IMMUNOSUPPRESSANT DRUG THERAPY
     Dosage: 24 MG
  13. TACROLIMUS [Suspect]
     Indication: LUNG TRANSPLANT
  14. AMPHOTERICIN B [Suspect]
     Indication: PNEUMONIA
     Dosage: 35 MG

REACTIONS (6)
  - BRONCHOPULMONARY ASPERGILLOSIS [None]
  - RENAL IMPAIRMENT [None]
  - PNEUMONIA [None]
  - LYMPHANGIOLEIOMYOMATOSIS [None]
  - ASPERGILLOSIS [None]
  - ASPHYXIA [None]
